FAERS Safety Report 5455301-5 (Version None)
Quarter: 2007Q3

REPORT INFORMATION
  Report Type: 
  Country: None (occurrence: None)
  Receive Date: 20070918
  Receipt Date: 20070910
  Transmission Date: 20080115
  Serious: Yes (Other)
  Sender: FDA-Public Use
  Company Number: US-ELI_LILLY_AND_COMPANY-US200708004165

PATIENT
  Age: 81 Year
  Sex: Female
  Weight: 83.9 kg

DRUGS (17)
  1. ASPIRIN [Concomitant]
  2. ZANTAC 150 [Concomitant]
  3. MIRALAX [Concomitant]
  4. RHINOCORT [Concomitant]
  5. FORTEO [Suspect]
     Indication: OSTEOPOROSIS
     Dosage: 20 UG, DAILY (1/D)
     Dates: start: 20070701, end: 20070831
  6. CYMBALTA [Suspect]
     Dosage: 60 MG, DAILY (1/D)
     Dates: start: 20070101
  7. LIPITOR [Concomitant]
  8. LORAZEPAM [Concomitant]
     Dosage: 0.5 UNK, DAILY (1/D)
  9. TRAMADOL HCL [Concomitant]
  10. RANITIDINE [Concomitant]
     Dosage: 300 MG, DAILY (1/D)
  11. PROTONIX [Concomitant]
     Dosage: 40 UNK, DAILY (1/D)
  12. PROTONIX [Concomitant]
     Dosage: 40 UNK, 2/D
  13. LEVOXYL [Concomitant]
     Dosage: 150 UNK, DAILY (1/D)
  14. VITAMIN D [Concomitant]
  15. VITAMIN B COMPLEX CAP [Concomitant]
  16. STOOL SOFTENER [Concomitant]
  17. CITRUCEL [Concomitant]

REACTIONS (1)
  - MALIGNANT MELANOMA IN SITU [None]
